FAERS Safety Report 9919776 (Version 3)
Quarter: 2014Q1

REPORT INFORMATION
  Report Type: Report from Study
  Country: AU (occurrence: AU)
  Receive Date: 20140224
  Receipt Date: 20140311
  Transmission Date: 20141002
  Serious: Yes (Hospitalization)
  Sender: FDA-Public Use
  Company Number: AU-GLAXOSMITHKLINE-B0893923B

PATIENT
  Age: 46 Year
  Sex: Female
  Weight: 121 kg

DRUGS (13)
  1. PAZOPANIB [Suspect]
     Indication: METASTATIC RENAL CELL CARCINOMA
     Dosage: 800MG PER DAY
     Route: 048
     Dates: start: 20130315
  2. VITAMIN D [Concomitant]
     Indication: ROUTINE HEALTH MAINTENANCE
     Dosage: 25MG PER DAY
     Route: 048
     Dates: start: 20121101, end: 20130501
  3. SOMAC [Concomitant]
     Indication: GASTROOESOPHAGEAL REFLUX DISEASE
     Dosage: 40MG PER DAY
     Route: 048
     Dates: start: 20121101, end: 20130423
  4. PARACETAMOL [Concomitant]
     Indication: HEADACHE
     Dosage: 1000MG AS REQUIRED
     Route: 048
     Dates: start: 20121101, end: 20130917
  5. ENDONE [Concomitant]
     Indication: SMALL INTESTINAL OBSTRUCTION
     Dosage: 5MG AS REQUIRED
     Route: 048
     Dates: start: 20130418
  6. MORPHINE [Concomitant]
     Indication: SMALL INTESTINAL OBSTRUCTION
     Dosage: 5MG AS REQUIRED
     Route: 042
     Dates: start: 20130417, end: 20130419
  7. STEMETIL [Concomitant]
     Indication: SMALL INTESTINAL OBSTRUCTION
     Dates: start: 20130417, end: 20130417
  8. ONDANSETRON [Concomitant]
     Indication: SMALL INTESTINAL OBSTRUCTION
     Dates: start: 20130417, end: 20130417
  9. CLEXANE [Concomitant]
     Indication: PROPHYLAXIS
     Dates: start: 20130418, end: 20130418
  10. ONDANSETRON [Concomitant]
     Indication: NAUSEA
     Dosage: 4MG PER DAY
     Route: 048
     Dates: start: 20130330, end: 20130521
  11. AMLODIPINE [Concomitant]
     Indication: HYPERTENSION
     Route: 048
     Dates: start: 20130604
  12. CELEBREX [Concomitant]
     Indication: DERMAL CYST
     Dosage: 100MG PER DAY
     Route: 048
     Dates: start: 20130818, end: 20130831
  13. CEPHALEXIN [Concomitant]
     Indication: EAR INFECTION
     Dosage: 500MG THREE TIMES PER DAY
     Route: 048
     Dates: start: 20130917, end: 20130924

REACTIONS (1)
  - Otitis externa [Not Recovered/Not Resolved]
